FAERS Safety Report 15700366 (Version 2)
Quarter: 2020Q1

REPORT INFORMATION
  Report Type: Spontaneous
  Country: US (occurrence: US)
  Receive Date: 20181207
  Receipt Date: 20200306
  Transmission Date: 20200409
  Serious: Yes (Other)
  Sender: FDA-Public Use
  Company Number: US-ASTRAZENECA-2018SF58540

PATIENT
  Age: 847 Month
  Sex: Female

DRUGS (16)
  1. NEXIUM 24HR [Suspect]
     Active Substance: ESOMEPRAZOLE MAGNESIUM
     Route: 048
  2. PRILOSEC [Suspect]
     Active Substance: OMEPRAZOLE MAGNESIUM
     Route: 048
     Dates: start: 2005, end: 2015
  3. PROTONIX [Suspect]
     Active Substance: PANTOPRAZOLE SODIUM
     Route: 065
     Dates: start: 2005, end: 2015
  4. RAMUCIRUMAB [Concomitant]
     Active Substance: RAMUCIRUMAB
     Dates: start: 201603
  5. CYANOCOBALAMIN. [Concomitant]
     Active Substance: CYANOCOBALAMIN
     Dates: start: 20150625
  6. METOPROLOL SUCCINATE. [Concomitant]
     Active Substance: METOPROLOL SUCCINATE
     Dates: start: 20150625
  7. PROMETHAZINE [Concomitant]
     Active Substance: PROMETHAZINE HYDROCHLORIDE
     Dates: start: 20160322
  8. LOSARTAN. [Concomitant]
     Active Substance: LOSARTAN
     Dates: start: 20150625
  9. AMIODARONE [Concomitant]
     Active Substance: AMIODARONE
     Dates: start: 20160315
  10. LEVOTHYROXINE. [Concomitant]
     Active Substance: LEVOTHYROXINE
     Dates: start: 20150625
  11. XANAX [Concomitant]
     Active Substance: ALPRAZOLAM
     Dates: start: 20170309
  12. NEXIUM [Suspect]
     Active Substance: ESOMEPRAZOLE MAGNESIUM
     Route: 048
     Dates: start: 2005, end: 2015
  13. TAXOL [Concomitant]
     Active Substance: PACLITAXEL
     Dates: start: 201603
  14. LASIX [Concomitant]
     Active Substance: FUROSEMIDE
     Dates: start: 20160513
  15. MIRAPEX [Concomitant]
     Active Substance: PRAMIPEXOLE DIHYDROCHLORIDE
     Dates: start: 20150625
  16. DILTIAZEM. [Concomitant]
     Active Substance: DILTIAZEM
     Dates: start: 20150625

REACTIONS (4)
  - Oesophageal adenocarcinoma [Unknown]
  - Lung cancer metastatic [Unknown]
  - Hepatic cancer metastatic [Unknown]
  - Gastric cancer stage III [Unknown]

NARRATIVE: CASE EVENT DATE: 201405
